FAERS Safety Report 8473300-6 (Version None)
Quarter: 2012Q2

REPORT INFORMATION
  Report Type: 
  Country: None (occurrence: None)
  Receive Date: 20120628
  Receipt Date: 20120622
  Transmission Date: 20120825
  Serious: Yes (Death, Hospitalization)
  Sender: FDA-Public Use
  Company Number: ES-BRISTOL-MYERS SQUIBB COMPANY-16326571

PATIENT
  Age: 62 Year
  Sex: Male

DRUGS (13)
  1. METAMIZOL [Concomitant]
     Dates: start: 20120110, end: 20120112
  2. MICARDIS [Concomitant]
     Dates: start: 20100101
  3. DEXAMETHASONE [Concomitant]
     Dates: start: 20120112, end: 20120112
  4. OXYCODONE HCL [Concomitant]
     Route: 042
     Dates: start: 20120109, end: 20120113
  5. IPILIMUMAB [Suspect]
     Indication: PROSTATE CANCER
     Route: 042
     Dates: start: 20111125, end: 20111216
  6. ZOLADEX [Concomitant]
     Dates: start: 20111125, end: 20120102
  7. METOCLOPRAMIDE HYDROCHLORIDE [Concomitant]
     Dates: start: 20120107, end: 20120112
  8. ENOXAPARIN [Concomitant]
     Dates: start: 20120107, end: 20120112
  9. FUROSEMIDE [Concomitant]
     Route: 042
     Dates: start: 20120110, end: 20120112
  10. DEXKETOPROFEN TROMETAMOL [Concomitant]
     Dates: start: 20120107, end: 20120112
  11. DOMPERIDONE [Concomitant]
     Dates: start: 20120107, end: 20120112
  12. CALCIUM-SANDOZ [Concomitant]
     Dates: start: 20110114, end: 20120102
  13. PLACEBO [Suspect]
     Indication: PROSTATE CANCER
     Route: 042
     Dates: start: 20111125, end: 20111216

REACTIONS (2)
  - DEATH [None]
  - TUMOUR PAIN [None]
